FAERS Safety Report 9309639 (Version 1)
Quarter: 2013Q2

REPORT INFORMATION
  Report Type: Spontaneous
  Country: US (occurrence: US)
  Receive Date: 20130525
  Receipt Date: 20130525
  Transmission Date: 20140414
  Serious: No
  Sender: FDA-Public Use
  Company Number: US-BRISTOL-MYERS SQUIBB COMPANY-18585943

PATIENT
  Sex: Female
  Weight: 136.05 kg

DRUGS (2)
  1. BYDUREON 2MG VIAL + SYRINGE [Suspect]
     Indication: WEIGHT DECREASED
     Route: 058
  2. ACTOS [Concomitant]
     Indication: TYPE 2 DIABETES MELLITUS
     Route: 048

REACTIONS (2)
  - Headache [Recovered/Resolved]
  - Off label use [Unknown]
